FAERS Safety Report 5858878-0 (Version None)
Quarter: 2008Q3

REPORT INFORMATION
  Report Type: 
  Country: None (occurrence: None)
  Receive Date: 20080826
  Receipt Date: 20080822
  Transmission Date: 20090109
  Serious: Yes (Other)
  Sender: FDA-Public Use
  Company Number: US-MERCK-0807USA04338

PATIENT
  Age: 64 Year
  Sex: Male
  Weight: 98 kg

DRUGS (4)
  1. VYTORIN [Suspect]
     Indication: BLOOD CHOLESTEROL INCREASED
     Route: 048
     Dates: start: 20080101, end: 20080701
  2. COUMADIN [Concomitant]
     Route: 065
  3. LISINOPRIL [Concomitant]
     Route: 048
  4. HYDROCHLOROTHIAZIDE [Concomitant]
     Route: 048

REACTIONS (3)
  - BONE PAIN [None]
  - MYALGIA [None]
  - PAIN [None]
